FAERS Safety Report 7770625-4 (Version None)
Quarter: 2011Q3

REPORT INFORMATION
  Report Type: 
  Country: None (occurrence: None)
  Receive Date: 20110922
  Receipt Date: 20110915
  Transmission Date: 20111222
  Serious: Yes (Other)
  Sender: FDA-Public Use
  Company Number: PHEH2011US04375

PATIENT
  Age: 90 Year
  Sex: Female

DRUGS (10)
  1. METOPROLOL TARTRATE [Suspect]
  2. KLOR-CON [Concomitant]
     Dosage: 1 DF, PER NIGHT
  3. LIPITOR [Concomitant]
  4. LASIX [Concomitant]
  5. ZETIA [Concomitant]
     Dosage: 1 DF, PER NIGHT
  6. AMIODARONE HCL [Concomitant]
  7. ASPIRIN [Concomitant]
     Dosage: 81 MG, UNK
  8. DIURETICS [Concomitant]
     Dosage: 20 MG, UNK
  9. RECLAST [Suspect]
     Dosage: 1 DF PER DAY, FOR 3 MONTHS
  10. LEXAPRO [Concomitant]
     Dosage: 1 DF, IN THE MORNING

REACTIONS (4)
  - FALL [None]
  - PELVIC FRACTURE [None]
  - CARDIAC FAILURE [None]
  - HIP FRACTURE [None]
